FAERS Safety Report 20083752 (Version 1)
Quarter: 2021Q4

REPORT INFORMATION
  Report Type: Spontaneous
  Country: PL (occurrence: PL)
  Receive Date: 20211118
  Receipt Date: 20211118
  Transmission Date: 20220304
  Serious: Yes (Life-Threatening, Other)
  Sender: FDA-Public Use
  Company Number: PL-URPL-DML-MLP.4401.1.942.2021

PATIENT
  Age: 20 Year
  Sex: Female
  Weight: 100 kg

DRUGS (3)
  1. SERTRALINE [Suspect]
     Active Substance: SERTRALINE HYDROCHLORIDE
     Indication: Product used for unknown indication
     Dosage: 1000 MILLIGRAM
     Route: 048
     Dates: start: 20201227
  2. TRAZODONE [Suspect]
     Active Substance: TRAZODONE HYDROCHLORIDE
     Indication: Product used for unknown indication
     Dosage: 1.125 GRAM
     Route: 048
     Dates: start: 20201227
  3. HYDROXYZINE [Suspect]
     Active Substance: HYDROXYZINE HYDROCHLORIDE
     Indication: Product used for unknown indication
     Dosage: 130 MILLIGRAM
     Route: 048
     Dates: start: 20201227

REACTIONS (3)
  - Suicide attempt [Unknown]
  - Toxicity to various agents [Unknown]
  - Somnolence [Unknown]
